FAERS Safety Report 4470175-7 (Version None)
Quarter: 2004Q3

REPORT INFORMATION
  Report Type: 
  Country: None (occurrence: None)
  Receive Date: 20040910
  Receipt Date: 20040702
  Transmission Date: 20050211
  Serious: No
  Sender: FDA-Public Use
  Company Number: 2004-00162

PATIENT
  Age: 71 Year
  Sex: Male
  Weight: 74.8 kg

DRUGS (6)
  1. VELCADE [Suspect]
     Indication: MULTIPLE MYELOMA
     Dates: start: 20040614
  2. FERROUS SULFATE TAB [Suspect]
     Dosage: 200.00 MG, QD, ORAL
     Route: 048
     Dates: start: 20040624, end: 20040701
  3. ZANTAC [Concomitant]
  4. NIFEDIPINE [Concomitant]
  5. METOPROLOL TARTRATE [Concomitant]
  6. ACETAMINOPHEN AND OXYCODONE HCL [Concomitant]

REACTIONS (3)
  - ASTHENIA [None]
  - DECREASED APPETITE [None]
  - PRURITUS GENERALISED [None]
